FAERS Safety Report 9122843 (Version 1)
Quarter: 2013Q1

REPORT INFORMATION
  Report Type: Spontaneous
  Country: US (occurrence: US)
  Receive Date: 20130227
  Receipt Date: 20130227
  Transmission Date: 20140127
  Serious: No
  Sender: FDA-Public Use
  Company Number: US-GLAXOSMITHKLINE-A0961799A

PATIENT
  Age: 70 Year
  Sex: Male

DRUGS (5)
  1. VALTREX [Suspect]
     Indication: GENITAL HERPES
     Dosage: 1000MG PER DAY
     Route: 048
     Dates: start: 199506
  2. PLAVIX [Concomitant]
  3. SIMVASTATIN [Concomitant]
  4. BLOOD PRESSURE MEDICATION [Concomitant]
  5. LORAZEPAM [Concomitant]

REACTIONS (2)
  - Tremor [Not Recovered/Not Resolved]
  - Vision blurred [Unknown]
